FAERS Safety Report 18313467 (Version 1)
Quarter: 2020Q3

REPORT INFORMATION
  Report Type: Spontaneous
  Country: FR (occurrence: FR)
  Receive Date: 20200925
  Receipt Date: 20200925
  Transmission Date: 20201103
  Serious: Yes (Other)
  Sender: FDA-Public Use
  Company Number: FR-CADILA HEALTHCARE LIMITED-FR-ZYDUS-019820

PATIENT

DRUGS (19)
  1. CLOZAPINE. [Suspect]
     Active Substance: CLOZAPINE
     Indication: PRODUCT USED FOR UNKNOWN INDICATION
     Dosage: 250 MILLIGRAM,FREQUENCY :QD
     Route: 048
     Dates: start: 20180505, end: 20180514
  2. OLANZAPINE. [Suspect]
     Active Substance: OLANZAPINE
     Indication: PRODUCT USED FOR UNKNOWN INDICATION
     Dosage: FREQUENCY :QD
     Route: 065
     Dates: end: 201802
  3. CLOZAPINE. [Suspect]
     Active Substance: CLOZAPINE
     Indication: PRODUCT USED FOR UNKNOWN INDICATION
     Dosage: 200 MILLIGRAM,FREQUENCY :QD
     Route: 048
     Dates: start: 20180423, end: 20180503
  4. LEPONEX [Suspect]
     Active Substance: CLOZAPINE
     Indication: SCHIZOPHRENIA
     Dosage: 25 MILLIGRAM,ALSO RECEIVED 25 MG AND 50 MG AND 75 MG, 150 MG DAILY,(NO OF SEPERATEDOSAGE :1,INTERVAL
     Route: 048
     Dates: start: 20180423
  5. LEPONEX [Suspect]
     Active Substance: CLOZAPINE
     Indication: SCHIZOPHRENIA
     Dosage: 25 MILLIGRAM,ALSO RECEIVED 75 MG AND 50 MG DAILY,(NO OF SEPERATEDOSAGE :1,INTERVAL :1 DAYS),FREQUENC
     Route: 048
     Dates: start: 20180331, end: 20180402
  6. CLOZAPINE. [Suspect]
     Active Substance: CLOZAPINE
     Indication: PRODUCT USED FOR UNKNOWN INDICATION
     Dosage: 150 MILLIGRAM,FREQUENCY :QD
     Route: 048
     Dates: start: 20180420, end: 20180423
  7. ZOLOFT [Concomitant]
     Active Substance: SERTRALINE HYDROCHLORIDE
     Indication: PRODUCT USED FOR UNKNOWN INDICATION
     Dosage: 3 DOSAGE FORM,FREQUENCY :QD
     Route: 048
     Dates: start: 20180131
  8. TERCIAN [Concomitant]
     Active Substance: CYAMEMAZINE
     Indication: PRODUCT USED FOR UNKNOWN INDICATION
     Dosage: 100 MILLIGRAM
     Route: 065
  9. SOLIAN [Concomitant]
     Active Substance: AMISULPRIDE
     Indication: PRODUCT USED FOR UNKNOWN INDICATION
     Dosage: 400 MILLIGRAM,03 DF , QD
     Route: 048
     Dates: start: 20180227
  10. SOLIAN [Concomitant]
     Active Substance: AMISULPRIDE
     Indication: PRODUCT USED FOR UNKNOWN INDICATION
     Dosage: 1 DOSAGE FORM,QD
     Route: 065
     Dates: start: 20180505
  11. CLOZAPINE. [Suspect]
     Active Substance: CLOZAPINE
     Indication: PRODUCT USED FOR UNKNOWN INDICATION
     Dosage: 125 MILLIGRAM,FREQUENCY :QD
     Route: 048
     Dates: start: 20180419, end: 20180420
  12. ALPRAZOLAM. [Concomitant]
     Active Substance: ALPRAZOLAM
     Indication: PRODUCT USED FOR UNKNOWN INDICATION
     Dosage: 3 DOSAGE FORM,(INTERVAL :1 DAYS),FREQUENCY :QD
     Route: 048
     Dates: start: 20180131
  13. LEPONEX [Suspect]
     Active Substance: CLOZAPINE
     Indication: SCHIZOPHRENIA
     Dosage: 50 MILLIGRAM,FREQUENCY :QD
     Route: 048
     Dates: start: 20180402, end: 20180408
  14. LEPONEX [Suspect]
     Active Substance: CLOZAPINE
     Indication: SCHIZOPHRENIA
     Dosage: 75 MILLIGRAM,FREQUENCY :QD
     Route: 048
     Dates: start: 20180408, end: 20180417
  15. OLANZAPINE. [Suspect]
     Active Substance: OLANZAPINE
     Indication: SCHIZOPHRENIA
     Dosage: 75 MILLIGRAM,FREQUENCY :QD
     Route: 048
     Dates: start: 20180408
  16. CLOZAPINE. [Suspect]
     Active Substance: CLOZAPINE
     Indication: PRODUCT USED FOR UNKNOWN INDICATION
     Dosage: 100 MILLIGRAM,FREQUENCY :QD
     Route: 048
     Dates: start: 20180417, end: 20180419
  17. CLOZAPINE. [Suspect]
     Active Substance: CLOZAPINE
     Indication: PRODUCT USED FOR UNKNOWN INDICATION
     Dosage: 275 MILLIGRAM,FREQUENCY :QD
     Route: 048
     Dates: start: 20180514
  18. CLOZAPINE. [Suspect]
     Active Substance: CLOZAPINE
     Indication: PRODUCT USED FOR UNKNOWN INDICATION
     Dosage: 225 MILLIGRAM,FREQUENCY :QD
     Route: 048
     Dates: start: 20180503, end: 20180505
  19. TERCIAN [Concomitant]
     Active Substance: CYAMEMAZINE
     Indication: PRODUCT USED FOR UNKNOWN INDICATION
     Dosage: 3.5 DOSAGE FORM,(INTERVAL :1 DAYS),FREQUENCY :QD
     Route: 065
     Dates: start: 20180131

REACTIONS (2)
  - Condition aggravated [Not Recovered/Not Resolved]
  - Lymphopenia [Not Recovered/Not Resolved]
